FAERS Safety Report 26120814 (Version 1)
Quarter: 2025Q4

REPORT INFORMATION
  Report Type: Spontaneous
  Country: CA (occurrence: CA)
  Receive Date: 20251204
  Receipt Date: 20251204
  Transmission Date: 20260117
  Serious: Yes (Life-Threatening)
  Sender: ACCORD
  Company Number: None

PATIENT
  Age: 48 Year
  Sex: Female

DRUGS (1)
  1. PACLITAXEL [Suspect]
     Active Substance: PACLITAXEL
     Indication: Product used for unknown indication
     Dosage: INTRAVENOUS SOLUTION

REACTIONS (10)
  - Dyspnoea [Unknown]
  - Oxygen therapy [Unknown]
  - Loss of consciousness [Unknown]
  - Nausea [Unknown]
  - Malaise [Unknown]
  - Rash [Unknown]
  - Infusion related reaction [Unknown]
  - Retching [Unknown]
  - Unresponsive to stimuli [Unknown]
  - Cough [Unknown]
